FAERS Safety Report 8988418 (Version 1)
Quarter: 2012Q4

REPORT INFORMATION
  Report Type: Spontaneous
  Country: US (occurrence: None)
  Receive Date: 20121221
  Receipt Date: 20121221
  Transmission Date: 20130627
  Serious: Yes (Life-Threatening, Hospitalization)
  Sender: FDA-Public Use
  Company Number: None

PATIENT
  Age: 79 Year
  Sex: Male
  Weight: 83.2 kg

DRUGS (1)
  1. REGADENOSON [Suspect]
     Dates: start: 20121001, end: 20121001

REACTIONS (6)
  - Hypotension [None]
  - Sinus bradycardia [None]
  - Loss of consciousness [None]
  - Hyperhidrosis [None]
  - Skin discolouration [None]
  - Cardio-respiratory arrest [None]
